FAERS Safety Report 18915049 (Version 1)
Quarter: 2021Q1

REPORT INFORMATION
  Report Type: Report from Study
  Country: US (occurrence: US)
  Receive Date: 20210218
  Receipt Date: 20210218
  Transmission Date: 20210420
  Serious: No
  Sender: FDA-Public Use
  Company Number: US-INCYTE CORPORATION-2021IN000158

PATIENT

DRUGS (1)
  1. JAKAFI [Suspect]
     Active Substance: RUXOLITINIB
     Indication: POLYCYTHAEMIA VERA
     Dosage: 10 MILLIGRAM (2 X 5 MG), BID
     Route: 048

REACTIONS (4)
  - Limb mass [Unknown]
  - Skin haemorrhage [Unknown]
  - Contusion [Unknown]
  - Arthralgia [Unknown]
